FAERS Safety Report 8549580 (Version 2)
Quarter: 2014Q2

REPORT INFORMATION
  Report Type: Spontaneous
  Country: US (occurrence: US)
  Receive Date: 20120507
  Receipt Date: 20140618
  Transmission Date: 20141212
  Serious: Yes (Death, Hospitalization)
  Sender: FDA-Public Use
  Company Number: US-GLAXOSMITHKLINE-A0729743A

PATIENT
  Age: 75 Year
  Sex: Male
  Weight: 85.5 kg

DRUGS (7)
  1. AVANDIA [Suspect]
     Indication: DIABETES MELLITUS
     Dosage: 4MG TWICE PER DAY
     Route: 048
     Dates: start: 20050512, end: 20070413
  2. AVANDAMET [Suspect]
     Indication: DIABETES MELLITUS
     Route: 048
  3. TOPROL [Concomitant]
  4. METFORMIN [Concomitant]
     Dates: start: 20050512, end: 20051010
  5. DIOVAN [Concomitant]
     Dates: start: 20050728, end: 20051010
  6. PLAVIX [Concomitant]
     Dates: start: 20050728
  7. LUMIGAN [Concomitant]
     Dates: start: 20050728, end: 20051010

REACTIONS (4)
  - Cardio-respiratory arrest [Fatal]
  - Cardiac failure congestive [Fatal]
  - Sick sinus syndrome [Unknown]
  - Cardiomyopathy [Unknown]
